FAERS Safety Report 7284857-5 (Version None)
Quarter: 2011Q1

REPORT INFORMATION
  Report Type: 
  Country: None (occurrence: None)
  Receive Date: 20110210
  Receipt Date: 20110128
  Transmission Date: 20110831
  Serious: Yes (Hospitalization)
  Sender: FDA-Public Use
  Company Number: CA-ELI_LILLY_AND_COMPANY-CA201102000340

PATIENT
  Age: 66 Year
  Sex: Female

DRUGS (13)
  1. FOLIC ACID [Concomitant]
  2. FORTEO [Suspect]
     Indication: OSTEOPOROSIS
     Dosage: 20 UG, DAILY (1/D)
     Route: 058
     Dates: start: 20100117
  3. METHOTREXATE [Concomitant]
  4. NEXIUM [Concomitant]
  5. CELEBREX [Concomitant]
  6. DIOVAN [Concomitant]
  7. ZOPICLONE [Concomitant]
  8. PLAQUENIL [Concomitant]
  9. OXYCODONE HCL [Concomitant]
  10. CALCIUM [Concomitant]
  11. VITAMIN D [Concomitant]
  12. CALCITONIN [Concomitant]
  13. HYDROCHLOROTHIAZIDE [Concomitant]

REACTIONS (2)
  - LIMB DISCOMFORT [None]
  - HIP ARTHROPLASTY [None]
